FAERS Safety Report 8362683-3 (Version None)
Quarter: 2012Q2

REPORT INFORMATION
  Report Type: 
  Country: None (occurrence: None)
  Receive Date: 20120516
  Receipt Date: 20120126
  Transmission Date: 20120825
  Serious: No
  Sender: FDA-Public Use
  Company Number: US-MYLANLABS-2011S1023130

PATIENT
  Age: 62 Year
  Sex: Female
  Weight: 83.46 kg

DRUGS (7)
  1. ASPIRIN [Concomitant]
  2. MULTI-VITAMINS [Concomitant]
  3. TRAZODONE HCL [Concomitant]
     Indication: DEPRESSION
  4. CALCIUM WITH VITAMIN D [Concomitant]
  5. BUPROPION HYDROCHLORIDE [Suspect]
     Indication: DEPRESSION
     Route: 048
     Dates: start: 20111011, end: 20111106
  6. NEXIUM [Concomitant]
     Indication: GASTROOESOPHAGEAL REFLUX DISEASE
  7. LIPITOR [Concomitant]
     Indication: BLOOD CHOLESTEROL INCREASED

REACTIONS (11)
  - HEART RATE IRREGULAR [None]
  - INSOMNIA [None]
  - IRRITABILITY [None]
  - FEELING ABNORMAL [None]
  - DEPRESSION [None]
  - AFFECT LABILITY [None]
  - HEADACHE [None]
  - AGITATION [None]
  - ANXIETY [None]
  - DYSPNOEA [None]
  - TREMOR [None]
